FAERS Safety Report 11490535 (Version 1)
Quarter: 2015Q3

REPORT INFORMATION
  Report Type: Other
  Country: CA (occurrence: CA)
  Receive Date: 20150910
  Receipt Date: 20150910
  Transmission Date: 20151125
  Serious: Yes (Other)
  Sender: FDA-Public Use
  Company Number: CA-APOTEX-2015AP012389

PATIENT
  Age: 83 Year
  Sex: Male

DRUGS (1)
  1. APO-CLOPIDOGREL [Suspect]
     Active Substance: CLOPIDOGREL BISULFATE
     Indication: CARDIOVASCULAR DISORDER
     Dosage: 75 MG, QD
     Route: 048

REACTIONS (3)
  - Product substitution issue [Recovered/Resolved]
  - Ocular discomfort [Recovered/Resolved]
  - Dermatitis allergic [Recovered/Resolved]
